FAERS Safety Report 4662872-5 (Version None)
Quarter: 2005Q2

REPORT INFORMATION
  Report Type: 
  Country: None (occurrence: None)
  Receive Date: 20050502
  Receipt Date: 20050204
  Transmission Date: 20051028
  Serious: Yes (Other)
  Sender: FDA-Public Use
  Company Number: 200510928US

PATIENT
  Age: 76 Year
  Sex: Female

DRUGS (12)
  1. KETEK [Suspect]
     Indication: BRONCHITIS ACUTE
     Dosage: 800 MG QD PO
     Route: 048
     Dates: start: 20050127, end: 20050131
  2. WARFARIN SODIUM [Concomitant]
  3. SIMVASTATIN [Concomitant]
  4. ASPIRIN [Concomitant]
  5. METOPROLOL SUCCINATE [Concomitant]
  6. FOLIC ACID [Concomitant]
  7. VITAMIN B6 [Concomitant]
  8. NORVASC [Concomitant]
  9. TERIPARATIDE (FORTEO) [Concomitant]
  10. HYDROMORPHONE HYDROCHLORIDE (DILAUDID) [Concomitant]
  11. CYCLOBENZAPRINE HYDROCHLORIDE (FLEXERIL) [Concomitant]
  12. ARAVA [Concomitant]

REACTIONS (4)
  - EPISTAXIS [None]
  - INCREASED TENDENCY TO BRUISE [None]
  - INTERNATIONAL NORMALISED RATIO INCREASED [None]
  - TINNITUS [None]
